FAERS Safety Report 6665566-X (Version None)
Quarter: 2010Q1

REPORT INFORMATION
  Report Type: 
  Country: None (occurrence: None)
  Receive Date: 20100330
  Receipt Date: 20100322
  Transmission Date: 20100710
  Serious: Yes (Other)
  Sender: FDA-Public Use
  Company Number: 232992J10USA

PATIENT
  Age: 50 Year
  Sex: Female
  Weight: 112 kg

DRUGS (2)
  1. REBIF [Suspect]
     Indication: MULTIPLE SCLEROSIS
     Dosage: 44 MCG, 3 IN 1 WEEKS, SUBCUTANEOUS
     Route: 058
     Dates: start: 20091216
  2. CONTINUOUS POSITIVE AIRWAY PRESSURE MACHINE (ALL OTHER THERAPEUTIC PRO [Concomitant]

REACTIONS (3)
  - CARDIAC VALVE DISEASE [None]
  - CORONARY ARTERY OCCLUSION [None]
  - INJECTION SITE RASH [None]
